FAERS Safety Report 24322706 (Version 1)
Quarter: 2024Q3

REPORT INFORMATION
  Report Type: Spontaneous
  Country: ZA (occurrence: ZA)
  Receive Date: 20240916
  Receipt Date: 20240916
  Transmission Date: 20241017
  Serious: Yes (Hospitalization)
  Sender: MACLEODS
  Company Number: ZA-MACLEODS PHARMA-MAC2024049284

PATIENT

DRUGS (23)
  1. CANDESARTAN [Suspect]
     Active Substance: CANDESARTAN
     Indication: Hypertension
     Dosage: ONE TABLET DAILY
     Route: 048
  2. GABAPENTIN [Suspect]
     Active Substance: GABAPENTIN
     Indication: Epilepsy
     Dosage: ONE IN THE MORNING THEN TWO IN THE EVENING
     Route: 048
  3. TORSEMIDE [Suspect]
     Active Substance: TORSEMIDE
     Indication: Hypertension
     Dosage: ONE TABLET DAILY
     Route: 048
  4. BISOPROLOL FUMARATE [Suspect]
     Active Substance: BISOPROLOL FUMARATE
     Indication: Hypertension
     Dosage: ONE TABLET DAILY
     Route: 048
  5. METFORMIN HYDROCHLORIDE [Suspect]
     Active Substance: METFORMIN HYDROCHLORIDE
     Indication: Diabetes mellitus
     Dosage: ONE TABLET TWICE A DAY
     Route: 048
  6. SIMVASTATIN [Suspect]
     Active Substance: SIMVASTATIN
     Indication: Blood cholesterol
     Dosage: ONE TABLET AT EVENING
     Route: 048
  7. PRAMIPEXOLE DIHYDROCHLORIDE [Suspect]
     Active Substance: PRAMIPEXOLE DIHYDROCHLORIDE
     Indication: Parkinson^s disease
     Dosage: ONE TABLET AT EVENING
     Route: 048
  8. CLOBAZAM [Suspect]
     Active Substance: CLOBAZAM
     Indication: Anxiety
     Dosage: ONE TABLET DAILY
     Route: 048
  9. FLUOXETINE HYDROCHLORIDE [Suspect]
     Active Substance: FLUOXETINE HYDROCHLORIDE
     Indication: Depression
     Dosage: ONE CAPSULE DAILY
     Route: 048
  10. BUDESONIDE [Suspect]
     Active Substance: BUDESONIDE
     Indication: Rhinitis allergic
     Dosage: NEBULIZE WITH A NEBULE TWICE A DAY
  11. MONTELUKAST SODIUM [Suspect]
     Active Substance: MONTELUKAST\MONTELUKAST SODIUM
     Indication: Asthma
     Dosage: ONE TABLET DAILY
     Route: 048
  12. NYSTATIN [Suspect]
     Active Substance: NYSTATIN
     Indication: Product used for unknown indication
     Dosage: 100000 U 1ML ORALLY FOUR TIMES A DAY
     Route: 048
  13. ACETAMINOPHEN\CODEINE PHOSPHATE\MEPROBAMATE [Suspect]
     Active Substance: ACETAMINOPHEN\CODEINE PHOSPHATE\MEPROBAMATE
     Indication: Pain
     Dosage: TWO CAPSULES THREE TIMES A DAY
     Route: 048
  14. FLUTICASONE PROPIONATE\SALMETEROL XINAFOATE [Suspect]
     Active Substance: FLUTICASONE PROPIONATE\SALMETEROL XINAFOATE
     Indication: Asthma
     Dosage: TWO INHALATIONS TWICE A DAY
  15. FLUTICASONE PROPIONATE\SALMETEROL XINAFOATE [Suspect]
     Active Substance: FLUTICASONE PROPIONATE\SALMETEROL XINAFOATE
     Indication: Asthma
     Dosage: TWO INHALATIONS TWICE A DAY
  16. OXYMETAZOLINE HYDROCHLORIDE [Suspect]
     Active Substance: OXYMETAZOLINE HYDROCHLORIDE
     Indication: Product used for unknown indication
     Dosage: 0.5 MG AS PER INCLUDED PACKAGE LEAFLET
     Route: 045
  17. ESCIN [Suspect]
     Active Substance: ESCIN
     Indication: Product used for unknown indication
     Dosage: AS PER INCLUDED PACKAGE LEAFLET
     Route: 048
  18. INFLUVAC [Suspect]
     Active Substance: INFLUENZA VIRUS VACCINE TRIVALENT TYPE A+B
     Indication: Product used for unknown indication
     Route: 058
  19. MACRODANTIN [Suspect]
     Active Substance: NITROFURANTOIN
     Indication: Prophylaxis
     Dosage: ONE CAPSULE FOUR TIMES A DAY
     Route: 048
  20. DOXYLAMINE SUCCINATE [Suspect]
     Active Substance: DOXYLAMINE SUCCINATE
     Indication: Product used for unknown indication
     Dosage: A AT NIGHT TABLET
     Route: 048
  21. FLUOXETINE [Suspect]
     Active Substance: FLUOXETINE HYDROCHLORIDE
     Indication: Depression
     Dosage: A CAPSULE DAILY
     Route: 048
  22. ACETYLCYSTEINE [Suspect]
     Active Substance: ACETYLCYSTEINE
     Indication: Product used for unknown indication
     Dosage: 600 MG AS PER INCLUDED PACKAGE LEAFLET
     Route: 048
  23. ACETYLCYSTEINE [Suspect]
     Active Substance: ACETYLCYSTEINE
     Indication: Product used for unknown indication
     Dosage: 200 MG AS PER INCLUDED PACKAGE LEAFLET
     Route: 048

REACTIONS (1)
  - Lung disorder [Unknown]
